FAERS Safety Report 8935268 (Version 1)
Quarter: 2012Q4

REPORT INFORMATION
  Report Type: 
  Country: US (occurrence: US)
  Receive Date: 20121129
  Receipt Date: 20121129
  Transmission Date: 20130627
  Serious: Yes (Other)
  Sender: FDA-Public Use
  Company Number: US-ASTRAZENECA-2012SE88109

PATIENT
  Sex: Female

DRUGS (1)
  1. SEROQUEL [Suspect]
     Route: 048

REACTIONS (5)
  - Hepatitis C [Unknown]
  - Convulsion [Unknown]
  - Hallucination [Unknown]
  - Adverse drug reaction [Unknown]
  - Muscle contractions involuntary [Unknown]
